FAERS Safety Report 9122884 (Version 1)
Quarter: 2013Q1

REPORT INFORMATION
  Report Type: Spontaneous
  Country: US (occurrence: US)
  Receive Date: 20130227
  Receipt Date: 20130227
  Transmission Date: 20140127
  Serious: No
  Sender: FDA-Public Use
  Company Number: US-GLAXOSMITHKLINE-A0977016A

PATIENT
  Sex: 0

DRUGS (2)
  1. VALTREX [Suspect]
     Indication: OPHTHALMIC HERPES ZOSTER
     Dosage: 1G THREE TIMES PER DAY
     Route: 048
     Dates: start: 20111220
  2. DIFLUPREDNATE [Suspect]
     Dosage: 1DROP TWENTY FOUR TIMES PER DAY
     Route: 047
     Dates: start: 20120116

REACTIONS (1)
  - Herpes zoster [Unknown]
